FAERS Safety Report 25234618 (Version 1)
Quarter: 2025Q2

REPORT INFORMATION
  Report Type: Spontaneous
  Country: US (occurrence: US)
  Receive Date: 20250424
  Receipt Date: 20250424
  Transmission Date: 20250716
  Serious: Yes (Other)
  Sender: MYLAN
  Company Number: US-MYLANLABS-2025M1034437

PATIENT
  Age: 59 Year
  Sex: Male

DRUGS (28)
  1. LEUCOVORIN [Suspect]
     Active Substance: LEUCOVORIN\LEUCOVORIN CALCIUM
     Indication: Colon cancer stage IV
  2. LEUCOVORIN [Suspect]
     Active Substance: LEUCOVORIN\LEUCOVORIN CALCIUM
     Route: 065
  3. LEUCOVORIN [Suspect]
     Active Substance: LEUCOVORIN\LEUCOVORIN CALCIUM
     Route: 065
  4. LEUCOVORIN [Suspect]
     Active Substance: LEUCOVORIN\LEUCOVORIN CALCIUM
  5. OXALIPLATIN [Suspect]
     Active Substance: OXALIPLATIN
     Indication: Colon cancer stage IV
  6. OXALIPLATIN [Suspect]
     Active Substance: OXALIPLATIN
     Route: 065
  7. OXALIPLATIN [Suspect]
     Active Substance: OXALIPLATIN
     Route: 065
  8. OXALIPLATIN [Suspect]
     Active Substance: OXALIPLATIN
  9. ALLOPURINOL [Suspect]
     Active Substance: ALLOPURINOL
     Indication: Tumour lysis syndrome
  10. ALLOPURINOL [Suspect]
     Active Substance: ALLOPURINOL
     Route: 065
  11. ALLOPURINOL [Suspect]
     Active Substance: ALLOPURINOL
     Route: 065
  12. ALLOPURINOL [Suspect]
     Active Substance: ALLOPURINOL
  13. LACTULOSE [Suspect]
     Active Substance: LACTULOSE
     Indication: Hepatic encephalopathy
  14. LACTULOSE [Suspect]
     Active Substance: LACTULOSE
     Route: 065
  15. LACTULOSE [Suspect]
     Active Substance: LACTULOSE
     Route: 065
  16. LACTULOSE [Suspect]
     Active Substance: LACTULOSE
  17. FLUOROURACIL [Suspect]
     Active Substance: FLUOROURACIL
     Indication: Colon cancer stage IV
  18. FLUOROURACIL [Suspect]
     Active Substance: FLUOROURACIL
     Route: 065
  19. FLUOROURACIL [Suspect]
     Active Substance: FLUOROURACIL
     Route: 065
  20. FLUOROURACIL [Suspect]
     Active Substance: FLUOROURACIL
  21. BEVACIZUMAB [Suspect]
     Active Substance: BEVACIZUMAB
     Indication: Colon cancer stage IV
  22. BEVACIZUMAB [Suspect]
     Active Substance: BEVACIZUMAB
     Route: 065
  23. BEVACIZUMAB [Suspect]
     Active Substance: BEVACIZUMAB
     Route: 065
  24. BEVACIZUMAB [Suspect]
     Active Substance: BEVACIZUMAB
  25. RASBURICASE [Suspect]
     Active Substance: RASBURICASE
     Indication: Tumour lysis syndrome
  26. RASBURICASE [Suspect]
     Active Substance: RASBURICASE
     Route: 065
  27. RASBURICASE [Suspect]
     Active Substance: RASBURICASE
     Route: 065
  28. RASBURICASE [Suspect]
     Active Substance: RASBURICASE

REACTIONS (3)
  - Tumour lysis syndrome [Unknown]
  - Drug ineffective [Unknown]
  - Renal impairment [Unknown]
